FAERS Safety Report 9733725 (Version 3)
Quarter: 2014Q1

REPORT INFORMATION
  Report Type: Spontaneous
  Country: US (occurrence: US)
  Receive Date: 20131205
  Receipt Date: 20140206
  Transmission Date: 20141002
  Serious: Yes (Hospitalization, Other)
  Sender: FDA-Public Use
  Company Number: US-RB-061168-13

PATIENT
  Age: 0 None
  Sex: Male

DRUGS (7)
  1. BUPRENORPHINE GENERIC [Suspect]
     Dosage: 4-5 MG/DAY
     Route: 064
     Dates: start: 20130215
  2. BUPRENORPHINE GENERIC [Suspect]
     Route: 064
     Dates: end: 20131122
  3. BUPRENORPHINE GENERIC [Suspect]
     Indication: DRUG DEPENDENCE
     Dosage: DOSING DETAILS UNKNOWN
     Route: 063
     Dates: start: 20131122
  4. ZOLOFT [Concomitant]
     Indication: DEPRESSION
     Route: 064
     Dates: start: 20130215, end: 2013
  5. ZOLOFT [Concomitant]
     Route: 063
     Dates: start: 20131122
  6. ZANTAC [Concomitant]
     Indication: VOMITING
     Dosage: DOSING DETAILS UNKNOWN
     Route: 064
     Dates: start: 2013, end: 2013
  7. ZOFRAN [Concomitant]
     Indication: VOMITING
     Dosage: DOSING DETAILS UNKNOWN
     Route: 064
     Dates: start: 2013, end: 2013

REACTIONS (3)
  - Foetal exposure during pregnancy [Recovered/Resolved]
  - Exposure during breast feeding [Not Recovered/Not Resolved]
  - Jaundice neonatal [Recovered/Resolved]
